FAERS Safety Report 9526858 (Version 2)
Quarter: 2013Q4

REPORT INFORMATION
  Report Type: Report from Study
  Country: BR (occurrence: BR)
  Receive Date: 20130916
  Receipt Date: 20131029
  Transmission Date: 20140711
  Serious: Yes (Other)
  Sender: FDA-Public Use
  Company Number: PHHY2013BR102472

PATIENT
  Age: 83 Year
  Sex: Female

DRUGS (1)
  1. EXELON PATCH [Suspect]
     Indication: MEMORY IMPAIRMENT
     Dosage: 9.5 MG, QD ( ONE 18 MG/10 CM2 PATCH, QD)
     Route: 062

REACTIONS (4)
  - Wrist fracture [Recovered/Resolved]
  - Condition aggravated [Unknown]
  - Fall [Recovered/Resolved]
  - Dizziness [Unknown]
